FAERS Safety Report 9405292 (Version 1)
Quarter: 2013Q3

REPORT INFORMATION
  Report Type: Spontaneous
  Country: US (occurrence: US)
  Receive Date: 20130717
  Receipt Date: 20130717
  Transmission Date: 20140515
  Serious: No
  Sender: FDA-Public Use
  Company Number: US-BAYER-2013-086407

PATIENT
  Sex: Female

DRUGS (13)
  1. ALEVE CAPLET [Suspect]
  2. PRISTIQ [Concomitant]
     Dosage: 1 DF, QD
  3. NEURONTIN [Concomitant]
     Dosage: 2 DF, TID
  4. CELEXA [Concomitant]
     Dosage: 1 DF, QD
  5. COREG [Concomitant]
     Dosage: 1 DF, BID
  6. DEPAKOTE ER [Concomitant]
     Dosage: 1 DF, BID
  7. DOXEPIN [Concomitant]
     Dosage: 2 DF, QD
  8. LOTENSIN [Concomitant]
     Dosage: 1 DF, QD
  9. MOBIC [Concomitant]
     Dosage: 1 DF, QD
  10. NEXIUM [Concomitant]
     Dosage: 1 DF, QD
  11. PROMETHAZINE [Concomitant]
     Dosage: 1 DF, TID
  12. SIMVASTATIN [Concomitant]
     Dosage: 1 DF, QD
  13. ULTRAM [Concomitant]
     Dosage: 2 DF, Q4HR

REACTIONS (1)
  - Drug hypersensitivity [None]
